FAERS Safety Report 25574317 (Version 1)
Quarter: 2025Q3

REPORT INFORMATION
  Report Type: Spontaneous
  Country: EU (occurrence: EU)
  Receive Date: 20250717
  Receipt Date: 20250717
  Transmission Date: 20251020
  Serious: Yes (Hospitalization)
  Sender: AIRGAS
  Company Number: EU-ALSI-2025000175

PATIENT
  Sex: Female

DRUGS (3)
  1. NITROUS OXIDE [Suspect]
     Active Substance: NITROUS OXIDE
     Indication: Product used for unknown indication
  2. TRAMADOL HYDROCHLORIDE [Suspect]
     Active Substance: TRAMADOL HYDROCHLORIDE
  3. PREGABALIN [Suspect]
     Active Substance: PREGABALIN

REACTIONS (3)
  - Substance dependence [Unknown]
  - Cognitive disorder [Recovering/Resolving]
  - Paraesthesia [Recovering/Resolving]
